FAERS Safety Report 6314788-6 (Version None)
Quarter: 2009Q3

REPORT INFORMATION
  Report Type: 
  Country: None (occurrence: None)
  Receive Date: 20090819
  Receipt Date: 20090817
  Transmission Date: 20100115
  Serious: No
  Sender: FDA-Public Use
  Company Number: US-B.I. PHARMACEUTICALS,INC./RIDGEFIELD-2009-BP-09728BP

PATIENT
  Sex: Female

DRUGS (2)
  1. SPIRIVA [Suspect]
     Dosage: 18 MCG
     Dates: start: 20090618
  2. SINGULAIR [Concomitant]
     Indication: LUNG DISORDER

REACTIONS (1)
  - LIP SWELLING [None]
